FAERS Safety Report 21953918 (Version 1)
Quarter: 2023Q1

REPORT INFORMATION
  Report Type: Spontaneous
  Country: IT (occurrence: IT)
  Receive Date: 20230204
  Receipt Date: 20230204
  Transmission Date: 20230417
  Serious: Yes (Hospitalization)
  Sender: FDA-Public Use
  Company Number: IT-BAYER-2023A013176

PATIENT
  Age: 79 Year
  Sex: Female

DRUGS (2)
  1. RIVAROXABAN [Suspect]
     Active Substance: RIVAROXABAN
     Indication: Product used for unknown indication
     Dosage: 15 MG
     Route: 048
     Dates: start: 20210201
  2. COVID-19 VACCINE [Concomitant]

REACTIONS (3)
  - Cerebrovascular accident [Unknown]
  - Weight increased [Unknown]
  - Increased appetite [Unknown]
